FAERS Safety Report 8818687 (Version 1)
Quarter: 2012Q4

REPORT INFORMATION
  Report Type: 
  Country: US (occurrence: US)
  Receive Date: 20121001
  Receipt Date: 20121001
  Transmission Date: 20130627
  Serious: Yes (Other)
  Sender: FDA-Public Use
  Company Number: US-ROCHE-1129808

PATIENT
  Sex: Female

DRUGS (2)
  1. HERCEPTIN [Suspect]
     Indication: BREAST CANCER
     Route: 065
     Dates: start: 19990422
  2. TAXOL [Concomitant]

REACTIONS (6)
  - Urine abnormality [Unknown]
  - Hypophagia [Unknown]
  - Back pain [Unknown]
  - Hypotension [Unknown]
  - Heart rate irregular [Unknown]
  - Apnoea [Unknown]
